FAERS Safety Report 8198531-4 (Version None)
Quarter: 2012Q1

REPORT INFORMATION
  Report Type: 
  Country: None (occurrence: None)
  Receive Date: 20120309
  Receipt Date: 20111223
  Transmission Date: 20120608
  Serious: No
  Sender: FDA-Public Use
  Company Number: US-AMGEN-USASP2011057782

PATIENT
  Age: 61 Year
  Sex: Female
  Weight: 61 kg

DRUGS (8)
  1. TRILIPIX [Concomitant]
     Dosage: 45 MG, QD
  2. CLARITIN [Concomitant]
     Dosage: 10 MG, QD
     Route: 048
  3. PERDIEM [Concomitant]
  4. PROLIA [Suspect]
     Indication: OSTEOPOROSIS POSTMENOPAUSAL
     Dosage: UNK
     Dates: start: 20111007
  5. ASPIRIN [Concomitant]
     Dosage: 325 MG, QD
     Route: 048
  6. CALTRATE + D [Concomitant]
     Dosage: 600 MG, BID
  7. COLACE [Concomitant]
     Dosage: UNK UNK, QD
  8. HYOSCYAMINE SULFATE [Concomitant]
     Dosage: .125 MG, UNK
     Route: 060

REACTIONS (5)
  - CONSTIPATION [None]
  - SYNOVIAL CYST [None]
  - PAIN [None]
  - CARPAL TUNNEL SYNDROME [None]
  - EXOSTOSIS [None]
